FAERS Safety Report 16291435 (Version 9)
Quarter: 2023Q1

REPORT INFORMATION
  Report Type: Spontaneous
  Country: US (occurrence: US)
  Receive Date: 20190509
  Receipt Date: 20230323
  Transmission Date: 20230418
  Serious: Yes (Hospitalization)
  Sender: FDA-Public Use
  Company Number: US-PFIZER INC-2019199220

PATIENT
  Age: 72 Year
  Sex: Female
  Weight: 80.74 kg

DRUGS (13)
  1. PREMARIN [Suspect]
     Active Substance: ESTROGENS, CONJUGATED
     Indication: Ovarian failure
     Dosage: 0.625 MG
     Dates: start: 1981
  2. PREMARIN [Suspect]
     Active Substance: ESTROGENS, CONJUGATED
     Indication: Hormone replacement therapy
     Dosage: 0.625 MG, DAILY
     Dates: start: 2012
  3. PREMARIN [Suspect]
     Active Substance: ESTROGENS, CONJUGATED
     Indication: Artificial menopause
     Dosage: 0.45 MG
  4. PREMARIN [Suspect]
     Active Substance: ESTROGENS, CONJUGATED
     Dosage: UNK
  5. PREMARIN [Suspect]
     Active Substance: ESTROGENS, CONJUGATED
     Dosage: 0.625 MG
     Route: 048
  6. PREMARIN [Suspect]
     Active Substance: ESTROGENS, CONJUGATED
     Dosage: 0.625 MG, 1X/DAY
     Route: 048
     Dates: start: 1981
  7. METOPROLOL [Concomitant]
     Active Substance: METOPROLOL
     Indication: Hypertension
     Dosage: UNK
  8. LEVOTHYROXINE [Concomitant]
     Active Substance: LEVOTHYROXINE
     Indication: Thyroid disorder
     Dosage: UNK
  9. AMLODIPINE [Concomitant]
     Active Substance: AMLODIPINE BESYLATE
     Dosage: UNK UNK, 1X/DAY (IN THE EVENING AT BED TIME)
  10. PRAVASTATIN [Concomitant]
     Active Substance: PRAVASTATIN
     Dosage: UNK
  11. GABAPENTIN [Concomitant]
     Active Substance: GABAPENTIN
     Dosage: UNK
  12. MECLIZINE [Concomitant]
     Active Substance: MECLIZINE HYDROCHLORIDE
     Dosage: UNK UNK, AS NEEDED
  13. ASPIRIN [Concomitant]
     Active Substance: ASPIRIN
     Dosage: LOW DOSE , DAILY

REACTIONS (5)
  - Headache [Recovered/Resolved]
  - Night sweats [Recovered/Resolved]
  - Depressed mood [Recovered/Resolved]
  - Disturbance in attention [Unknown]
  - Product dispensing error [Unknown]

NARRATIVE: CASE EVENT DATE: 20190601
